FAERS Safety Report 10703749 (Version 1)
Quarter: 2015Q1

REPORT INFORMATION
  Report Type: Spontaneous
  Country: US (occurrence: US)
  Receive Date: 20150112
  Receipt Date: 20150112
  Transmission Date: 20150721
  Serious: No
  Sender: FDA-Public Use
  Company Number: US-ASTRAZENECA-2014SE90737

PATIENT
  Age: 923 Month
  Sex: Female
  Weight: 59 kg

DRUGS (4)
  1. SPIRIVA [Suspect]
     Active Substance: TIOTROPIUM BROMIDE MONOHYDRATE
     Indication: CHRONIC OBSTRUCTIVE PULMONARY DISEASE
     Dosage: DAILY
     Route: 055
     Dates: start: 201411, end: 201411
  2. LATANAPROST [Concomitant]
     Indication: GLAUCOMA
     Route: 031
     Dates: start: 201410
  3. SYMBICORT [Suspect]
     Active Substance: BUDESONIDE\FORMOTEROL FUMARATE DIHYDRATE
     Indication: CHRONIC OBSTRUCTIVE PULMONARY DISEASE
     Dosage: 160 4.5 MCG 2 PUFFS,  TWO TIMES DAILY
     Route: 055
     Dates: end: 201411
  4. SYMBICORT [Suspect]
     Active Substance: BUDESONIDE\FORMOTEROL FUMARATE DIHYDRATE
     Indication: CHRONIC OBSTRUCTIVE PULMONARY DISEASE
     Dosage: 160 4.5 MCG 2 PUFFS, AFTER MEALS
     Route: 055
     Dates: start: 201411

REACTIONS (2)
  - Dyspnoea [Recovering/Resolving]
  - Candida infection [Recovered/Resolved]

NARRATIVE: CASE EVENT DATE: 201411
